FAERS Safety Report 10410536 (Version 2)
Quarter: 2018Q2

REPORT INFORMATION
  Report Type: Spontaneous
  Country: US (occurrence: US)
  Receive Date: 20140826
  Receipt Date: 20180502
  Transmission Date: 20180711
  Serious: No
  Sender: FDA-Public Use
  Company Number: US-BRISTOL-MYERS SQUIBB COMPANY-19517143

PATIENT
  Sex: Female
  Weight: 61.22 kg

DRUGS (2)
  1. NORCO [Concomitant]
     Active Substance: ACETAMINOPHEN\HYDROCODONE BITARTRATE
     Indication: PRODUCT USED FOR UNKNOWN INDICATION
     Route: 065
  2. KENALOG-40 [Suspect]
     Active Substance: TRIAMCINOLONE ACETONIDE
     Indication: PRODUCT USED FOR UNKNOWN INDICATION
     Dosage: UNK
     Route: 008
     Dates: start: 20130910

REACTIONS (9)
  - Dizziness [Unknown]
  - Flushing [Unknown]
  - Nausea [Unknown]
  - Headache [Unknown]
  - Pain [Recovered/Resolved]
  - Abdominal distension [Unknown]
  - Vision blurred [Unknown]
  - Product use issue [Unknown]
  - Metrorrhagia [Unknown]
